FAERS Safety Report 6767936-8 (Version None)
Quarter: 2010Q2

REPORT INFORMATION
  Report Type: 
  Country: None (occurrence: None)
  Receive Date: 20100614
  Receipt Date: 20100611
  Transmission Date: 20101027
  Serious: Yes (Other)
  Sender: FDA-Public Use
  Company Number: GXKR2010DE06377

PATIENT
  Age: 70 Year
  Sex: Male

DRUGS (1)
  1. BISOHEXAL (NGX) [Suspect]
     Dosage: 5 MG, BID
     Route: 048

REACTIONS (2)
  - BLUE TOE SYNDROME [None]
  - PERIPHERAL VASCULAR DISORDER [None]
